FAERS Safety Report 5931082-3 (Version None)
Quarter: 2008Q4

REPORT INFORMATION
  Report Type: 
  Country: None (occurrence: None)
  Receive Date: 20081022
  Receipt Date: 20080604
  Transmission Date: 20090506
  Serious: Yes (Hospitalization)
  Sender: FDA-Public Use
  Company Number: CL000342008

PATIENT
  Sex: Male

DRUGS (3)
  1. CIPROFLOXACIN [Suspect]
     Indication: MYCOBACTERIAL INFECTION
  2. ALVERINE [Suspect]
  3. CLARITHROMYCIN [Concomitant]

REACTIONS (3)
  - EOSINOPHILIA [None]
  - HYPOTENSION [None]
  - MYCOBACTERIAL INFECTION [None]
